FAERS Safety Report 5733942-5 (Version None)
Quarter: 2008Q2

REPORT INFORMATION
  Report Type: 
  Country: None (occurrence: None)
  Receive Date: 20080509
  Receipt Date: 20061211
  Transmission Date: 20081010
  Serious: Yes (Hospitalization)
  Sender: FDA-Public Use
  Company Number: DE-BOEHRINGER INGELHEIM GMBH, GERMANY-2006-DE-06411DE

PATIENT
  Age: 78 Year
  Sex: Female
  Weight: 68 kg

DRUGS (7)
  1. SPIRIVA [Suspect]
     Indication: CHRONIC OBSTRUCTIVE PULMONARY DISEASE
     Dosage: START OF THERAPY WITH SPIRIVA AFTER ONSET OF EVENT
     Route: 055
     Dates: start: 20060419
  2. OPIPRAMOL [Concomitant]
     Indication: DEPRESSION
  3. IBUPROFEN TABLETS [Concomitant]
     Indication: SPINAL DISORDER
  4. BETA-2-AGONIST LONG-ACTING [Concomitant]
     Indication: RESPIRATORY THERAPY
  5. ANTICHOLINERGIC SHORT-ACTING [Concomitant]
     Indication: RESPIRATORY THERAPY
  6. CORTICOID INHALATIVE [Concomitant]
     Indication: RESPIRATORY THERAPY
     Route: 055
  7. THEOPHYLLINE [Concomitant]
     Indication: RESPIRATORY THERAPY

REACTIONS (1)
  - DYSPNOEA [None]
